FAERS Safety Report 4726076-X (Version None)
Quarter: 2005Q3

REPORT INFORMATION
  Report Type: 
  Country: None (occurrence: None)
  Receive Date: 20050725
  Receipt Date: 20050712
  Transmission Date: 20060218
  Serious: Yes (Hospitalization)
  Sender: FDA-Public Use
  Company Number: 2005012593

PATIENT
  Age: 36 Year
  Sex: Female
  Weight: 42.8 kg

DRUGS (7)
  1. ZOLOFT [Suspect]
     Indication: ILL-DEFINED DISORDER
     Dosage: (50 MG, 1 IN 1 D), ORAL
     Route: 048
     Dates: start: 20041120, end: 20041204
  2. LEVOTHYROXINE SODIUM [Concomitant]
  3. THIORIDAZINE HCL [Concomitant]
  4. LEXOMIL (BROMAZEPAM) [Concomitant]
  5. RISPERDAL [Concomitant]
  6. HEPATAMINOL (HEPATAMINOL) [Concomitant]
  7. FORLAX (MACROGOL) [Concomitant]

REACTIONS (3)
  - GENERAL PHYSICAL HEALTH DETERIORATION [None]
  - HAEMOGLOBIN DECREASED [None]
  - PURPURA [None]
